FAERS Safety Report 7938321-8 (Version None)
Quarter: 2011Q4

REPORT INFORMATION
  Report Type: 
  Country: None (occurrence: None)
  Receive Date: 20111123
  Receipt Date: 20111118
  Transmission Date: 20120403
  Serious: Yes (Hospitalization)
  Sender: FDA-Public Use
  Company Number: DE-ABBOTT-10P-062-0674543-00

PATIENT
  Sex: Male
  Weight: 64 kg

DRUGS (5)
  1. DELTARON [Concomitant]
     Indication: PSORIATIC ARTHROPATHY
     Route: 048
  2. HUMIRA [Suspect]
     Route: 058
     Dates: start: 20100823
  3. FERROUS SULFATE TAB [Concomitant]
     Indication: IRON DEFICIENCY
  4. TERPIN [Concomitant]
     Indication: PSORIATIC ARTHROPATHY
     Dosage: 30/15
     Route: 048
  5. HUMIRA [Suspect]
     Indication: PSORIATIC ARTHROPATHY
     Route: 058
     Dates: start: 20010410

REACTIONS (3)
  - INGUINAL HERNIA [None]
  - CALCULUS URETERIC [None]
  - NEPHROLITHIASIS [None]
